FAERS Safety Report 17969398 (Version 1)
Quarter: 2020Q3

REPORT INFORMATION
  Report Type: Spontaneous
  Country: CZ (occurrence: CZ)
  Receive Date: 20200701
  Receipt Date: 20200701
  Transmission Date: 20201103
  Serious: Yes (Other)
  Sender: FDA-Public Use
  Company Number: CZ-MYLANLABS-2020M1059248

PATIENT
  Age: 42 Year
  Sex: Female

DRUGS (5)
  1. EUTHYROX [Concomitant]
     Active Substance: LEVOTHYROXINE SODIUM
     Dosage: UNK
  2. ASCORUTIN [Concomitant]
     Active Substance: ASCORBIC ACID\RUTIN
     Dosage: UNK
     Dates: start: 201912, end: 201912
  3. MILGAMMA                           /01146701/ [Concomitant]
     Dosage: USED FOR ABOUT 1 MONTH DURING ADMINISTRATION OF MIRTAZAPIN
  4. MIRZATEN [Concomitant]
     Active Substance: MIRTAZAPINE
     Indication: INSOMNIA
     Dosage: 30 MILLIGRAM, QD, ONE SINGLE USE BEFORE USING MIRTAZAPIN
     Route: 048
     Dates: start: 20191128, end: 20191128
  5. MIRTAZAPINE. [Suspect]
     Active Substance: MIRTAZAPINE
     Indication: INSOMNIA
     Dosage: 15 MILLIGRAM, QD, FOR 3,5 MONTHS, DOSAGE 0?0?1
     Route: 048
     Dates: start: 20191129, end: 202003

REACTIONS (4)
  - Fatigue [Recovered/Resolved]
  - Slow response to stimuli [Recovered/Resolved]
  - Headache [Recovered/Resolved]
  - Metrorrhagia [Recovered/Resolved]

NARRATIVE: CASE EVENT DATE: 20191129
